FAERS Safety Report 6479770-7 (Version None)
Quarter: 2009Q4

REPORT INFORMATION
  Report Type: 
  Country: None (occurrence: None)
  Receive Date: 20091208
  Receipt Date: 20091127
  Transmission Date: 20100525
  Serious: Yes (Hospitalization, Other)
  Sender: FDA-Public Use
  Company Number: PHHY2009JP34732

PATIENT
  Age: 81 Year
  Sex: Female
  Weight: 47 kg

DRUGS (8)
  1. DIOVAN HCT [Suspect]
     Indication: HYPERTENSION
     Dosage: 1 DF (80/12.5 MG), QD
     Route: 048
     Dates: start: 20090501, end: 20090531
  2. OLMETEC [Suspect]
     Indication: HYPERTENSION
     Dosage: 20 MG DAILY
     Route: 048
     Dates: end: 20090501
  3. OLMETEC [Suspect]
     Dosage: 20 MG DAILY
     Route: 048
     Dates: start: 20090530, end: 20090602
  4. DIART [Suspect]
     Indication: OEDEMA
     Dosage: 30 MG DAILY
     Route: 048
     Dates: start: 20090501, end: 20090501
  5. ALFAROL [Concomitant]
     Indication: OSTEOPOROSIS
     Dosage: 0.5 UG, UNK
     Route: 048
  6. ARICEPT [Concomitant]
     Indication: DEMENTIA
     Dosage: 5 MG, UNK
     Route: 048
  7. SEDIEL [Concomitant]
     Indication: INSOMNIA
     Dosage: 10 MG, UNK
     Route: 048
  8. MYSLEE [Concomitant]
     Indication: INSOMNIA
     Dosage: 5 MG, UNK
     Route: 048

REACTIONS (3)
  - C-REACTIVE PROTEIN INCREASED [None]
  - HYPONATRAEMIA [None]
  - OEDEMA PERIPHERAL [None]
